FAERS Safety Report 7593887-5 (Version None)
Quarter: 2011Q3

REPORT INFORMATION
  Report Type: 
  Country: None (occurrence: None)
  Receive Date: 20110706
  Receipt Date: 20110630
  Transmission Date: 20111222
  Serious: Yes (Death)
  Sender: FDA-Public Use
  Company Number: PHHY2011US58429

PATIENT
  Sex: Female

DRUGS (13)
  1. PROBIOTICS (MICROORGANISMS W/PROBIOTIC ACTION) [Concomitant]
  2. FISH OIL [Concomitant]
  3. LOPRESSOR [Concomitant]
  4. METAMUCIL-2 [Concomitant]
  5. NONI JUICE LIQ [Concomitant]
  6. CARTIA XT [Concomitant]
  7. MAGNESIUM OXIDE [Concomitant]
  8. ASCORBIC ACID [Concomitant]
  9. LEVAQUIN [Concomitant]
  10. BACTRIM [Concomitant]
     Dosage: 80 MG, UNK
  11. EXJADE [Suspect]
     Dosage: 2000 MG
     Route: 048
  12. VICODIN [Concomitant]
     Dosage: 5 DF, UNK
  13. PUMPKIN OIL [Concomitant]

REACTIONS (1)
  - DEATH [None]
